FAERS Safety Report 23243490 (Version 2)
Quarter: 2024Q1

REPORT INFORMATION
  Report Type: Report from Study
  Country: CA (occurrence: CA)
  Receive Date: 20231130
  Receipt Date: 20240112
  Transmission Date: 20240410
  Serious: Yes (Other)
  Sender: FDA-Public Use
  Company Number: CA-JNJFOC-20230700462

PATIENT
  Age: 47 Year
  Sex: Male

DRUGS (2)
  1. REMICADE [Suspect]
     Active Substance: INFLIXIMAB
     Indication: Crohn^s disease
     Dosage: EXPIRY DATE: 24-NOV-2025
     Route: 041
  2. REMICADE [Suspect]
     Active Substance: INFLIXIMAB
     Indication: Crohn^s disease
     Route: 041

REACTIONS (10)
  - Rheumatoid arthritis [Recovering/Resolving]
  - Crohn^s disease [Recovering/Resolving]
  - Influenza [Unknown]
  - Malaise [Unknown]
  - Eye irritation [Not Recovered/Not Resolved]
  - Skin irritation [Not Recovered/Not Resolved]
  - Pruritus [Unknown]
  - Hot flush [Unknown]
  - Psoriasis [Unknown]
  - Dry skin [Unknown]

NARRATIVE: CASE EVENT DATE: 20230627
